FAERS Safety Report 8094652-5 (Version None)
Quarter: 2012Q1

REPORT INFORMATION
  Report Type: 
  Country: None (occurrence: None)
  Receive Date: 20120131
  Receipt Date: 20111208
  Transmission Date: 20120608
  Serious: No
  Sender: FDA-Public Use
  Company Number: US-ABBOTT-11P-163-0883309-00

PATIENT
  Sex: Male

DRUGS (1)
  1. CREON [Suspect]
     Indication: PANCREATITIS
     Dates: start: 20111204

REACTIONS (3)
  - MEDICATION ERROR [None]
  - INCORRECT ROUTE OF DRUG ADMINISTRATION [None]
  - BURNING SENSATION [None]
